FAERS Safety Report 9432865 (Version 4)
Quarter: 2014Q3

REPORT INFORMATION
  Report Type: Spontaneous
  Country: JP (occurrence: None)
  Receive Date: 20130729
  Receipt Date: 20140729
  Transmission Date: 20150326
  Serious: Yes (Hospitalization)
  Sender: FDA-Public Use
  Company Number: ABR_00907_2013

PATIENT
  Age: 75 Year
  Sex: Male
  Weight: 65 kg

DRUGS (1)
  1. GLIADEL [Suspect]
     Active Substance: CARMUSTINE
     Indication: MALIGNANT GLIOMA
     Dosage: 5 DF 1X [38.5 MG, 5 DOSAGE FROMS ONCE]  INTRACEREBRAL)
     Dates: start: 20130315, end: 20130322

REACTIONS (6)
  - Pneumocephalus [None]
  - Brain oedema [None]
  - Cerebral infarction [None]
  - Hemiplegia [None]
  - Intracranial pressure increased [None]
  - Altered state of consciousness [None]

NARRATIVE: CASE EVENT DATE: 20130316
